FAERS Safety Report 8510940-X (Version None)
Quarter: 2012Q3

REPORT INFORMATION
  Report Type: 
  Country: None (occurrence: None)
  Receive Date: 20120716
  Receipt Date: 20120704
  Transmission Date: 20120928
  Serious: No
  Sender: FDA-Public Use
  Company Number: CA-JNJFOC-20120702552

PATIENT
  Sex: Male
  Weight: 93.4 kg

DRUGS (1)
  1. REMICADE [Suspect]
     Indication: CROHN'S DISEASE
     Dosage: APPROXIMATELY 2 YEARS
     Route: 042

REACTIONS (3)
  - VIRAL INFECTION [None]
  - STOMATITIS [None]
  - SKIN LESION [None]
